FAERS Safety Report 19438995 (Version 3)
Quarter: 2021Q3

REPORT INFORMATION
  Report Type: Report from Study
  Country: US (occurrence: US)
  Receive Date: 20210618
  Receipt Date: 20210701
  Transmission Date: 20211014
  Serious: Yes (Other)
  Sender: FDA-Public Use
  Company Number: US-BIOGEN-2021BI01021932

PATIENT
  Age: 70 Year
  Sex: Male

DRUGS (3)
  1. VUMERITY [Suspect]
     Active Substance: DIROXIMEL FUMARATE
     Dosage: STARTING DOSE
     Route: 048
     Dates: start: 20210527, end: 20210602
  2. VUMERITY [Suspect]
     Active Substance: DIROXIMEL FUMARATE
     Dosage: X 23 DAYS AFTER 231MG DOSE?MAINTENANCE DOSE
     Route: 048
     Dates: start: 202106
  3. VUMERITY [Suspect]
     Active Substance: DIROXIMEL FUMARATE
     Indication: MULTIPLE SCLEROSIS
     Dosage: X 7 DAYS?STARTING DOSE
     Route: 048
     Dates: start: 202106

REACTIONS (3)
  - Renal haemorrhage [Recovered/Resolved]
  - Haemorrhage [Unknown]
  - Flushing [Unknown]

NARRATIVE: CASE EVENT DATE: 20210601
